FAERS Safety Report 4600633-3 (Version None)
Quarter: 2005Q1

REPORT INFORMATION
  Report Type: 
  Country: None (occurrence: None)
  Receive Date: 20050304
  Receipt Date: 20050223
  Transmission Date: 20050727
  Serious: Yes (Congenital Anomaly)
  Sender: FDA-Public Use
  Company Number: 2005-UK-00098UK

PATIENT
  Age: 12 Week
  Sex: Female

DRUGS (4)
  1. NEVIRAPINE [Suspect]
     Indication: HIV INFECTION
     Dosage: 400 MG (NR) IU
     Route: 015
     Dates: start: 20030101
  2. COMBIVIR [Suspect]
     Indication: HIV INFECTION
     Dosage: TWICE DAILY (NR) IU
     Route: 015
     Dates: start: 20030101
  3. FOLATE SUPPLEMENT (NR) [Concomitant]
  4. METHYLDOPA (METHYLDOPA) (NR) [Concomitant]

REACTIONS (3)
  - CARDIAC MURMUR [None]
  - DRUG EXPOSURE DURING PREGNANCY [None]
  - VENTRICULAR SEPTAL DEFECT [None]
